FAERS Safety Report 4679641-2 (Version None)
Quarter: 2005Q2

REPORT INFORMATION
  Report Type: 
  Country: None (occurrence: None)
  Receive Date: 20050531
  Receipt Date: 20050509
  Transmission Date: 20051028
  Serious: Yes (Hospitalization)
  Sender: FDA-Public Use
  Company Number: PAR_0064_2005

PATIENT
  Age: 49 Year
  Sex: Female

DRUGS (6)
  1. IBUPROFEN [Suspect]
     Indication: SINUSITIS
     Dosage: DF PO
     Route: 048
     Dates: start: 20041201
  2. ASPIRIN COMPLEX [Suspect]
     Indication: HEADACHE
     Dosage: 1000 MG QDAY PO
     Route: 048
     Dates: start: 20041227, end: 20041227
  3. . [Concomitant]
  4. CORTISONE [Concomitant]
     Indication: SINUSITIS
     Dosage: DF PO
     Route: 048
     Dates: start: 20041201
  5. ASS 100 [Suspect]
     Indication: CARDIAC DISORDER
     Dosage: DF PO
     Route: 048
     Dates: start: 20040401
  6. L-THYROXIN [Concomitant]

REACTIONS (5)
  - ABDOMINAL PAIN [None]
  - GASTRIC HAEMORRHAGE [None]
  - GASTRITIS [None]
  - HEADACHE [None]
  - NAUSEA [None]
